FAERS Safety Report 9648762 (Version 1)
Quarter: 2013Q4

REPORT INFORMATION
  Report Type: Spontaneous
  Country: US (occurrence: None)
  Receive Date: 20131025
  Receipt Date: 20131025
  Transmission Date: 20140711
  Serious: Yes (Life-Threatening, Hospitalization)
  Sender: FDA-Public Use
  Company Number: None

PATIENT
  Age: 60 Year
  Sex: Male

DRUGS (1)
  1. SUTENT [Suspect]
     Route: 048

REACTIONS (16)
  - Renal failure [None]
  - Fatigue [None]
  - Hypersomnia [None]
  - Hepatic failure [None]
  - Thrombocytopenia [None]
  - Hepatic encephalopathy [None]
  - Thrombosis [None]
  - Urine abnormality [None]
  - Nausea [None]
  - Weight decreased [None]
  - Vomiting [None]
  - Dehydration [None]
  - Atrial fibrillation [None]
  - Temperature intolerance [None]
  - Metabolic disorder [None]
  - Blood albumin decreased [None]
